FAERS Safety Report 25520159 (Version 1)
Quarter: 2025Q3

REPORT INFORMATION
  Report Type: Spontaneous
  Country: JP (occurrence: JP)
  Receive Date: 20250704
  Receipt Date: 20250704
  Transmission Date: 20251020
  Serious: Yes (Other)
  Sender: DAIICHI
  Company Number: JP-DSJP-DS-2025-150794-JP

PATIENT
  Age: 9 Decade
  Sex: Male

DRUGS (7)
  1. EDOXABAN TOSYLATE [Suspect]
     Active Substance: EDOXABAN TOSYLATE
     Indication: Product used for unknown indication
     Route: 048
  2. BISOPROLOL FUMARATE [Suspect]
     Active Substance: BISOPROLOL FUMARATE
     Indication: Product used for unknown indication
     Route: 048
  3. AMLODIPINE BESYLATE [Suspect]
     Active Substance: AMLODIPINE BESYLATE
     Indication: Product used for unknown indication
     Route: 048
  4. TOPIROXOSTAT [Concomitant]
     Active Substance: TOPIROXOSTAT
     Indication: Product used for unknown indication
     Route: 048
  5. ELDECALCITOL [Concomitant]
     Active Substance: ELDECALCITOL
     Indication: Product used for unknown indication
     Route: 048
  6. LACTULOSE [Concomitant]
     Active Substance: LACTULOSE
     Indication: Product used for unknown indication
     Route: 048
  7. BONALON [Concomitant]
     Active Substance: ALENDRONATE SODIUM
     Indication: Product used for unknown indication
     Route: 048

REACTIONS (3)
  - BRASH syndrome [Unknown]
  - Haematuria [Unknown]
  - Decreased appetite [Unknown]
